FAERS Safety Report 12941387 (Version 1)
Quarter: 2016Q4

REPORT INFORMATION
  Report Type: Report from Study
  Country: US (occurrence: US)
  Receive Date: 20161115
  Receipt Date: 20161115
  Transmission Date: 20170207
  Serious: Yes (Other)
  Sender: FDA-Public Use
  Company Number: US-ROCHE-1852225

PATIENT
  Age: 36 Year
  Sex: Female
  Weight: 102.15 kg

DRUGS (11)
  1. AVASTIN [Suspect]
     Active Substance: BEVACIZUMAB
     Dosage: LEFT EYE?2.5 MG INJECTION (0.1 ML) (AVASTIN INJECTABLE 25MG PER ML)
     Route: 031
     Dates: start: 20160113, end: 20160113
  2. INDERAL [Concomitant]
     Active Substance: PROPRANOLOL HYDROCHLORIDE
     Dosage: ON SAME DOSE FOR 23 YEARS
     Route: 065
  3. AVASTIN [Suspect]
     Active Substance: BEVACIZUMAB
     Dosage: LEFT EYE?2.5 MG INJECTION (0.1 ML) (AVASTIN INJECTABLE 25MG PER ML)
     Route: 031
     Dates: start: 20160811, end: 20160811
  4. EFFEXOR [Concomitant]
     Active Substance: VENLAFAXINE HYDROCHLORIDE
     Route: 048
  5. AVASTIN [Suspect]
     Active Substance: BEVACIZUMAB
     Dosage: LEFT EYE?2.5 MG INJECTION (0.1 ML) (AVASTIN INJECTABLE 25MG PER ML)
     Route: 031
     Dates: start: 20160330, end: 20160330
  6. VITAMIN D3 [Concomitant]
     Active Substance: CHOLECALCIFEROL
     Route: 065
  7. AVASTIN [Suspect]
     Active Substance: BEVACIZUMAB
     Indication: PRESUMED OCULAR HISTOPLASMOSIS SYNDROME
     Dosage: LEFT EYE?2.5 MG INJECTION (0.1 ML) (AVASTIN INJECTABLE 25MG PER ML)
     Route: 031
     Dates: start: 20151202, end: 20151202
  8. PRILOSEC [Concomitant]
     Active Substance: OMEPRAZOLE MAGNESIUM
     Dosage: OTC DAILY
     Route: 048
  9. AVASTIN [Suspect]
     Active Substance: BEVACIZUMAB
     Dosage: LEFT EYE?2.5 MG INJECTION (0.1 ML) (AVASTIN INJECTABLE 25MG PER ML)
     Route: 031
     Dates: start: 20160218, end: 20160218
  10. AVASTIN [Suspect]
     Active Substance: BEVACIZUMAB
     Dosage: LEFT EYE?2.5 MG INJECTION (0.1 ML) (AVASTIN INJECTABLE 25MG PER ML)
     Route: 031
     Dates: start: 20160609, end: 20160609
  11. CRANBERRY EXTRACT [Concomitant]
     Active Substance: CRANBERRY JUICE
     Route: 048

REACTIONS (5)
  - Foetal growth restriction [Unknown]
  - Off label use [Unknown]
  - Maternal exposure during pregnancy [Unknown]
  - Abortion spontaneous [Unknown]
  - Haemorrhage [Recovered/Resolved]

NARRATIVE: CASE EVENT DATE: 20161014
